FAERS Safety Report 9228442 (Version 2)
Quarter: 2013Q2

REPORT INFORMATION
  Report Type: Spontaneous
  Country: US (occurrence: US)
  Receive Date: 20130412
  Receipt Date: 20130605
  Transmission Date: 20140414
  Serious: Yes (Life-Threatening, Hospitalization, Other)
  Sender: FDA-Public Use
  Company Number: US-ABBOTT-13P-163-1075627-00

PATIENT
  Age: 42 Year
  Sex: Male
  Weight: 87.62 kg

DRUGS (27)
  1. HUMIRA [Suspect]
     Indication: CROHN^S DISEASE
     Dates: start: 200710, end: 201301
  2. HUMIRA [Suspect]
  3. CONCERTA [Concomitant]
     Indication: ATTENTION DEFICIT/HYPERACTIVITY DISORDER
  4. PROTONIX [Concomitant]
     Indication: GASTROOESOPHAGEAL REFLUX DISEASE
     Route: 048
  5. LEVOTHYROXINE [Concomitant]
     Indication: HYPOTHYROIDISM
  6. CYMBALTA [Concomitant]
     Indication: PAIN
     Route: 048
  7. CYMBALTA [Concomitant]
     Indication: DEPRESSION
  8. MICONAZOLE [Concomitant]
     Indication: CANDIDA INFECTION
  9. PREDNISONE [Concomitant]
     Indication: CROHN^S DISEASE
  10. VITAMIN D NOS [Concomitant]
     Indication: MALABSORPTION
     Route: 048
  11. VITAMIN B12 [Concomitant]
     Indication: MALABSORPTION
     Dosage: 1000MCG/ML
     Route: 030
  12. LEVOXYL [Concomitant]
     Indication: DEEP VEIN THROMBOSIS
  13. DURAGESIC [Concomitant]
     Indication: PAIN
  14. ATIVAN [Concomitant]
     Indication: TREMOR
     Route: 048
  15. ATIVAN [Concomitant]
     Indication: ANXIETY
  16. VALIUM [Concomitant]
     Indication: PRODUCT USED FOR UNKNOWN INDICATION
     Route: 048
  17. SONATA [Concomitant]
     Indication: INSOMNIA
     Route: 048
  18. ENTOCORT [Concomitant]
     Indication: CROHN^S DISEASE
  19. MORPHINE [Concomitant]
     Indication: PAIN
     Dates: start: 20130408
  20. MORPHINE [Concomitant]
     Indication: DEEP VEIN THROMBOSIS
  21. MORPHINE [Concomitant]
     Indication: ABDOMINAL PAIN UPPER
  22. ALDACTONE [Concomitant]
     Indication: PRODUCT USED FOR UNKNOWN INDICATION
     Route: 048
  23. BENADRYL [Concomitant]
     Indication: PRODUCT USED FOR UNKNOWN INDICATION
     Route: 048
  24. FLUCONAZOLE [Concomitant]
     Indication: PRODUCT USED FOR UNKNOWN INDICATION
     Route: 048
  25. KLONOPIN [Concomitant]
     Indication: PRODUCT USED FOR UNKNOWN INDICATION
     Route: 048
  26. LEVSIN SL [Concomitant]
     Indication: PRODUCT USED FOR UNKNOWN INDICATION
     Route: 048
  27. METHYLPREDNISOLONE [Concomitant]
     Indication: PRODUCT USED FOR UNKNOWN INDICATION
     Route: 048

REACTIONS (21)
  - Small intestinal obstruction [Recovered/Resolved]
  - Hepatic failure [Not Recovered/Not Resolved]
  - Jaundice [Unknown]
  - Thrombosis [Not Recovered/Not Resolved]
  - Pancreatitis relapsing [Unknown]
  - Abdominal pain upper [Not Recovered/Not Resolved]
  - Candida infection [Unknown]
  - Weight increased [Recovered/Resolved]
  - Fluid retention [Recovered/Resolved]
  - Vertigo [Recovering/Resolving]
  - Mood swings [Recovering/Resolving]
  - Decreased appetite [Recovering/Resolving]
  - Red blood cell count decreased [Recovering/Resolving]
  - Medication error [Recovered/Resolved]
  - Pyrexia [Recovering/Resolving]
  - Fatigue [Recovering/Resolving]
  - Cough [Recovered/Resolved]
  - Influenza [Recovered/Resolved]
  - Bronchitis [Recovered/Resolved]
  - Pneumonia [Recovered/Resolved]
  - Staphylococcal infection [Recovered/Resolved]
